FAERS Safety Report 8346955-4 (Version None)
Quarter: 2012Q1

REPORT INFORMATION
  Report Type: 
  Country: None (occurrence: None)
  Receive Date: 20120315
  Receipt Date: 20110516
  Transmission Date: 20120608
  Serious: No
  Sender: FDA-Public Use
  Company Number: PHHY2011US35755

PATIENT
  Age: 48 Year
  Sex: Female

DRUGS (12)
  1. PAXIL [Concomitant]
  2. SENNA (SENNA, SENNA ALEXANDRINA) [Concomitant]
  3. GILENYA [Suspect]
     Indication: MULTIPLE SCLEROSIS
     Dosage: 0.5 MG, QD, ORAL
     Route: 048
     Dates: start: 20110405
  4. TOVIAZ [Concomitant]
  5. BIRTH CONTROL PILL [Concomitant]
  6. ZANAFLEX [Concomitant]
  7. TEMAZEPAM [Concomitant]
  8. LORTAB [Concomitant]
  9. AMPYRA [Concomitant]
  10. ARICEPT [Concomitant]
  11. ATENOLOL [Concomitant]
  12. XANAX [Concomitant]

REACTIONS (2)
  - BLOOD CHOLESTEROL INCREASED [None]
  - ENZYME ABNORMALITY [None]
